FAERS Safety Report 23637473 (Version 2)
Quarter: 2024Q2

REPORT INFORMATION
  Report Type: Report from Study
  Country: JP (occurrence: JP)
  Receive Date: 20240315
  Receipt Date: 20240521
  Transmission Date: 20240716
  Serious: Yes (Other)
  Sender: FDA-Public Use
  Company Number: JP-GENMAB-2024-00775

PATIENT
  Age: 71 Year
  Sex: Male
  Weight: 52.4 kg

DRUGS (8)
  1. EPKINLY [Suspect]
     Active Substance: EPCORITAMAB-BYSP
     Indication: High grade B-cell lymphoma refractory
     Dosage: 0.16 MILLIGRAM, SINGLE
     Route: 058
     Dates: start: 20231218, end: 20231218
  2. EPKINLY [Suspect]
     Active Substance: EPCORITAMAB-BYSP
     Dosage: 0.8 MILLIGRAM, SINGLE
     Route: 058
     Dates: start: 20231225, end: 20231225
  3. EPKINLY [Suspect]
     Active Substance: EPCORITAMAB-BYSP
     Dosage: 48 MILLIGRAM
     Route: 058
     Dates: start: 20240105, end: 20240206
  4. DEXAMETHASONE [Concomitant]
     Active Substance: DEXAMETHASONE
     Dosage: 16 MILLIGRAM, DOSE 1-3, DAY 1, DAY 2, DAY 3 AND DAY 4 OF ADMINISTRATION OF EPKINLY SUBCUTANEOUS INJE
     Dates: start: 20231218, end: 20240108
  5. DEXAMETHASONE [Concomitant]
     Active Substance: DEXAMETHASONE
     Dosage: 15 MILLIGRAM, DOSE 4, DAY 1, DAY 2, DAY 3 OF ADMINISTRATION OF EPKINLY SUBCUTANEOUS INJECTION (EPCOR
     Dates: start: 20240112, end: 20240114
  6. CORTICOTROPIN [Concomitant]
     Active Substance: CORTICOTROPIN
     Indication: Prophylaxis
     Dosage: UNK
     Dates: start: 20231218, end: 20240112
  7. ANTIHISTAMINES NOS [Concomitant]
     Active Substance: ANTIHISTAMINES NOS
     Indication: Prophylaxis
     Dosage: UNK
     Dates: start: 20231218, end: 20240206
  8. UNSPECIFIED INGREDIENT [Concomitant]
     Active Substance: UNSPECIFIED INGREDIENT
     Indication: Prophylaxis
     Dosage: UNK
     Dates: start: 20231218, end: 20240206

REACTIONS (3)
  - High grade B-cell lymphoma refractory [Unknown]
  - Cytomegalovirus viraemia [Recovered/Resolved]
  - Cytokine release syndrome [Recovered/Resolved]

NARRATIVE: CASE EVENT DATE: 20240110
